FAERS Safety Report 18807138 (Version 1)
Quarter: 2021Q1

REPORT INFORMATION
  Report Type: Spontaneous
  Country: US (occurrence: US)
  Receive Date: 20210128
  Receipt Date: 20210128
  Transmission Date: 20210419
  Serious: No
  Sender: FDA-Public Use
  Company Number: None

PATIENT
  Age: 70 Year
  Sex: Male
  Weight: 135 kg

DRUGS (11)
  1. TESTOSTERONE GEL [Concomitant]
     Active Substance: TESTOSTERONE
  2. MVT [Concomitant]
  3. FERROUS SULFATE. [Concomitant]
     Active Substance: FERROUS SULFATE
  4. TYLENOL [Concomitant]
     Active Substance: ACETAMINOPHEN
  5. PROZAC [Concomitant]
     Active Substance: FLUOXETINE HYDROCHLORIDE
  6. SAGE 2% CHLORHEXIDINE GLUCONATE CLOTH [Suspect]
     Active Substance: CHLORHEXIDINE GLUCONATE
     Indication: SURGERY
     Route: 061
     Dates: start: 20201222, end: 20210111
  7. PANTOPRAZOLE [Concomitant]
     Active Substance: PANTOPRAZOLE
  8. PRAMAPEXOLE [Concomitant]
  9. TRAMADOL. [Concomitant]
     Active Substance: TRAMADOL
  10. NEGATIVE PRESSURE WOUND THERAPY DEVICE [Concomitant]
  11. FOLIC ACID. [Concomitant]
     Active Substance: FOLIC ACID

REACTIONS (3)
  - Hypersensitivity [None]
  - Rash [None]
  - Pruritus [None]

NARRATIVE: CASE EVENT DATE: 20201223
